FAERS Safety Report 6645329-1 (Version None)
Quarter: 2010Q1

REPORT INFORMATION
  Report Type: 
  Country: None (occurrence: None)
  Receive Date: 20100322
  Receipt Date: 20100311
  Transmission Date: 20100710
  Serious: Yes (Hospitalization)
  Sender: FDA-Public Use
  Company Number: JP-AMGEN-US400164

PATIENT
  Age: 73 Year

DRUGS (1)
  1. ENBREL [Suspect]
     Indication: RHEUMATOID ARTHRITIS
     Route: 058
     Dates: start: 20090601, end: 20091201

REACTIONS (2)
  - BONE MARROW DISORDER [None]
  - SEPTIC ARTHRITIS STAPHYLOCOCCAL [None]
